FAERS Safety Report 21034392 (Version 2)
Quarter: 2022Q3

REPORT INFORMATION
  Report Type: Spontaneous
  Country: NL (occurrence: NL)
  Receive Date: 20220701
  Receipt Date: 20220820
  Transmission Date: 20221027
  Serious: Yes (Hospitalization)
  Sender: FDA-Public Use
  Company Number: None

PATIENT
  Age: 45 Year
  Sex: Female
  Weight: 61 kg

DRUGS (4)
  1. AJOVY [Suspect]
     Active Substance: FREMANEZUMAB-VFRM
     Indication: Migraine
     Dosage: 225 MG ONCE EVERY 4 WEEKS, FREMANEZUMAB INJVLST 150MG/ML / AJOVY INJVLST 150MG/ML PEN 1,5ML, DURATIO
     Dates: start: 20200901, end: 20220607
  2. MACROGOL/SALTS [Concomitant]
     Indication: Product used for unknown indication
     Dosage: POWDER FOR DRINK, MACROGOL/SALTS PDR V BEVERAGE (MOVIC/MOLAX/LAXT/GEN) / BRAND NAME NOT SPECIFIED, T
  3. ETORICOXIB [Concomitant]
     Active Substance: ETORICOXIB
     Indication: Product used for unknown indication
     Dosage: 90 MG (MILLIGRAMS), ETORICOXIB TABLET FO  90MG / BRAND NAME NOT SPECIFIED, THERAPY START DATE AND E
  4. ELETRIPTAN [Concomitant]
     Active Substance: ELETRIPTAN
     Indication: Product used for unknown indication
     Dosage: 40 MG (MILLIGRAM), THERAPY START DATE AND END DATE : ASKU, ELETRIPTAN TABLET FO, BRAND NAME NOT SPE

REACTIONS (1)
  - Cerebellar infarction [Recovering/Resolving]

NARRATIVE: CASE EVENT DATE: 20220517
